FAERS Safety Report 5961295-6 (Version None)
Quarter: 2008Q4

REPORT INFORMATION
  Report Type: 
  Country: None (occurrence: None)
  Receive Date: 20081121
  Receipt Date: 20081112
  Transmission Date: 20090506
  Serious: Yes (Hospitalization)
  Sender: FDA-Public Use
  Company Number: JP-AMGEN-US315107

PATIENT
  Sex: Female
  Weight: 35 kg

DRUGS (20)
  1. ENBREL [Suspect]
     Indication: RHEUMATOID ARTHRITIS
     Dosage: LYOPHILIZED 25 MG ONCE WEEKLY
     Route: 058
     Dates: start: 20080424, end: 20080807
  2. PREDNISOLONE [Concomitant]
     Indication: RHEUMATOID ARTHRITIS
     Route: 048
     Dates: start: 20070201, end: 20080626
  3. LANSOPRAZOLE [Concomitant]
     Indication: REFLUX OESOPHAGITIS
     Route: 048
  4. MUCOSTA [Concomitant]
     Indication: GASTRITIS
     Route: 048
  5. ZOLPIDEM TARTRATE [Concomitant]
     Indication: INSOMNIA
     Route: 048
  6. BONALON [Concomitant]
     Indication: OSTEOPOROSIS
     Route: 048
  7. POLARAMINE [Concomitant]
     Indication: URTICARIA
     Route: 048
  8. CRESTOR [Concomitant]
     Indication: HYPERLIPIDAEMIA
     Route: 048
  9. TOLEDOMIN [Concomitant]
     Indication: DEPRESSION
     Route: 048
  10. TALION [Concomitant]
     Indication: URTICARIA
     Route: 048
  11. ASPARTATE CALCIUM [Concomitant]
     Indication: OSTEOPOROSIS
     Route: 048
  12. ONE-ALPHA [Concomitant]
     Indication: OSTEOPOROSIS
     Route: 048
  13. METHOTREXATE [Concomitant]
     Indication: RHEUMATOID ARTHRITIS
     Route: 048
     Dates: start: 20060617
  14. METHOTREXATE [Concomitant]
     Route: 048
     Dates: start: 20060817, end: 20060914
  15. METHOTREXATE [Concomitant]
     Route: 048
     Dates: start: 20060914, end: 20070524
  16. METHOTREXATE [Concomitant]
     Route: 048
     Dates: start: 20070524, end: 20070719
  17. METHOTREXATE [Concomitant]
     Route: 048
     Dates: start: 20070719
  18. RIBOFLAVIN TETRABUTYRATE [Concomitant]
  19. CASANTHRANOL [Concomitant]
  20. DOCUSATE SODIUM [Concomitant]

REACTIONS (2)
  - MALIGNANT PLEURAL EFFUSION [None]
  - PLEURAL EFFUSION [None]
